FAERS Safety Report 5120831-2 (Version None)
Quarter: 2006Q4

REPORT INFORMATION
  Report Type: 
  Country: None (occurrence: None)
  Receive Date: 20061003
  Receipt Date: 20061003
  Transmission Date: 20070319
  Serious: No
  Sender: FDA-Public Use
  Company Number: None

PATIENT
  Age: 92 Year
  Sex: Female
  Weight: 58.9676 kg

DRUGS (2)
  1. CRESTOR [Suspect]
     Indication: BLOOD CHOLESTEROL INCREASED
     Dosage: HALF TABLET DAILY BUCCAL
     Route: 002
     Dates: start: 20050801, end: 20060801
  2. CRESTOR [Suspect]
     Indication: DIABETES MELLITUS
     Dosage: HALF TABLET DAILY BUCCAL
     Route: 002
     Dates: start: 20050801, end: 20060801

REACTIONS (5)
  - MUSCLE INJURY [None]
  - MUSCULOSKELETAL PAIN [None]
  - MYALGIA [None]
  - PAIN [None]
  - PAIN IN EXTREMITY [None]
